FAERS Safety Report 6558228-0 (Version None)
Quarter: 2010Q1

REPORT INFORMATION
  Report Type: 
  Country: None (occurrence: None)
  Receive Date: 20100127
  Receipt Date: 20100127
  Transmission Date: 20100710
  Serious: Yes (Hospitalization)
  Sender: FDA-Public Use
  Company Number: None

PATIENT
  Age: 84 Year
  Sex: Male
  Weight: 105.9 kg

DRUGS (9)
  1. COUMADIN [Suspect]
     Indication: ATRIAL FIBRILLATION
     Dosage: 5 MG DAILY PO, CHRONIC
     Route: 048
  2. XANAX [Concomitant]
  3. TIOTROPIUM [Concomitant]
  4. ADVAIR DISKUS 100/50 [Concomitant]
  5. AMIODARONE HCL [Concomitant]
  6. ESOMEPROZOLE [Concomitant]
  7. LASIX [Concomitant]
  8. DOCUSATE [Concomitant]
  9. PERCOCET [Concomitant]

REACTIONS (5)
  - ASTHENIA [None]
  - DIEULAFOY'S VASCULAR MALFORMATION [None]
  - FALL [None]
  - INTERNATIONAL NORMALISED RATIO INCREASED [None]
  - RENAL FAILURE ACUTE [None]
